FAERS Safety Report 26142019 (Version 2)
Quarter: 2025Q4

REPORT INFORMATION
  Report Type: Spontaneous
  Country: CN (occurrence: CN)
  Receive Date: 20251210
  Receipt Date: 20251218
  Transmission Date: 20260118
  Serious: Yes (Other)
  Sender: GILEAD
  Company Number: CN-GILEAD-2025-0739251

PATIENT

DRUGS (1)
  1. BIKTARVY [Suspect]
     Active Substance: BICTEGRAVIR SODIUM\EMTRICITABINE\TENOFOVIR ALAFENAMIDE FUMARATE
     Indication: Prophylaxis against HIV infection
     Dosage: UNK
     Route: 065

REACTIONS (19)
  - Herpes pharyngitis [Not Recovered/Not Resolved]
  - Glossitis [Recovered/Resolved]
  - Lymphadenopathy [Recovered/Resolved]
  - Discomfort [Recovered/Resolved]
  - Fear [Recovered/Resolved]
  - Myalgia [Recovered/Resolved]
  - Eczema [Not Recovered/Not Resolved]
  - Abdominal discomfort [Recovered/Resolved]
  - Gastrointestinal sounds abnormal [Recovered/Resolved]
  - Diarrhoea [Recovered/Resolved]
  - Frequent bowel movements [Recovered/Resolved]
  - Abnormal faeces [Recovered/Resolved]
  - Pain in extremity [Recovered/Resolved]
  - Decreased appetite [Recovered/Resolved]
  - Vomiting [Recovered/Resolved]
  - Tongue coated [Recovered/Resolved]
  - Eczema asteatotic [Unknown]
  - Skin exfoliation [Unknown]
  - Product use in unapproved indication [Not Recovered/Not Resolved]
